FAERS Safety Report 8164949-9 (Version None)
Quarter: 2012Q1

REPORT INFORMATION
  Report Type: 
  Country: None (occurrence: None)
  Receive Date: 20120227
  Receipt Date: 20120217
  Transmission Date: 20120608
  Serious: No
  Sender: FDA-Public Use
  Company Number: US-BIOGENIDEC-2012BI006465

PATIENT
  Sex: Female

DRUGS (1)
  1. TYSABRI [Suspect]
     Indication: MULTIPLE SCLEROSIS
     Route: 042
     Dates: start: 20101013, end: 20101113

REACTIONS (6)
  - HYPOAESTHESIA ORAL [None]
  - HYPOAESTHESIA [None]
  - GAIT DISTURBANCE [None]
  - HYPOGEUSIA [None]
  - BALANCE DISORDER [None]
  - DYSKINESIA [None]
